FAERS Safety Report 12727899 (Version 2)
Quarter: 2016Q4

REPORT INFORMATION
  Report Type: Spontaneous
  Country: FR (occurrence: FR)
  Receive Date: 20160909
  Receipt Date: 20161215
  Transmission Date: 20170207
  Serious: Yes (Death)
  Sender: FDA-Public Use
  Company Number: FR-ELI_LILLY_AND_COMPANY-FR201609001716

PATIENT
  Sex: Male
  Weight: 75 kg

DRUGS (1)
  1. CIALIS [Suspect]
     Active Substance: TADALAFIL
     Indication: ERECTILE DYSFUNCTION
     Dosage: 20 MG, UNKNOWN
     Route: 065

REACTIONS (10)
  - Pain [Unknown]
  - Overdose [Unknown]
  - Intentional product misuse [Unknown]
  - Agitation [Unknown]
  - Chest discomfort [Unknown]
  - Malaise [Unknown]
  - Presyncope [Unknown]
  - Death [Fatal]
  - Paraesthesia [Unknown]
  - Gastrooesophageal reflux disease [Unknown]
